FAERS Safety Report 4458315-7 (Version None)
Quarter: 2004Q3

REPORT INFORMATION
  Report Type: 
  Country: None (occurrence: None)
  Receive Date: 20040924
  Receipt Date: 20040914
  Transmission Date: 20050211
  Serious: Yes (Death, Other)
  Sender: FDA-Public Use
  Company Number: US-BRISTOL-MYERS SQUIBB COMPANY-12702072

PATIENT
  Age: 44 Year
  Sex: Male
  Weight: 124 kg

DRUGS (6)
  1. ZERIT XR [Suspect]
     Indication: HIV INFECTION
     Dosage: TEMPORARILY HELD WITH LAST DOSE 15-JUL-2004
     Route: 048
     Dates: start: 20040519
  2. EMTRIVA [Suspect]
     Indication: HIV INFECTION
     Dosage: TEMPORARILY HELD WITH LAST DOSE 15-JUL-2004
     Route: 048
     Dates: start: 20040519
  3. KALETRA [Suspect]
     Indication: HIV INFECTION
     Dosage: TEMPORARILY HELD WITH LAST DOSE 15-JUL-2004
     Route: 048
     Dates: start: 20040519
  4. DIFLUCAN [Concomitant]
  5. BACTRIM DS [Concomitant]
  6. ZITHROMAX [Concomitant]

REACTIONS (2)
  - HEPATOSPLENOMEGALY [None]
  - METASTATIC NEOPLASM [None]
